FAERS Safety Report 23229917 (Version 1)
Quarter: 2023Q4

REPORT INFORMATION
  Report Type: Spontaneous
  Country: US (occurrence: US)
  Receive Date: 20231127
  Receipt Date: 20231127
  Transmission Date: 20240110
  Serious: Yes (Other)
  Sender: FDA-Public Use
  Company Number: US-STRIDES ARCOLAB LIMITED-2023SP017456

PATIENT
  Age: 11 Year
  Sex: Male

DRUGS (3)
  1. ALBUTEROL [Suspect]
     Active Substance: ALBUTEROL
     Indication: Asthma
     Dosage: UNK
     Route: 065
  2. SINGULAIR [Suspect]
     Active Substance: MONTELUKAST SODIUM
     Indication: Asthma
     Dosage: UNK
     Route: 065
  3. PULMICORT TURBUHALER [Suspect]
     Active Substance: BUDESONIDE
     Indication: Asthma
     Dosage: UNK
     Route: 065

REACTIONS (5)
  - Dyspnoea [Recovered/Resolved]
  - Condition aggravated [Recovered/Resolved]
  - Tachycardia [Recovered/Resolved]
  - Chest discomfort [Recovered/Resolved]
  - Thyroid disorder [Unknown]
